FAERS Safety Report 9373918 (Version 5)
Quarter: 2013Q3

REPORT INFORMATION
  Report Type: Spontaneous
  Country: US (occurrence: US)
  Receive Date: 20130628
  Receipt Date: 20130806
  Transmission Date: 20140515
  Serious: Yes (Hospitalization, Other)
  Sender: FDA-Public Use
  Company Number: US-ROCHE-718588

PATIENT
  Age: 20 Year
  Sex: Male
  Weight: 79.4 kg

DRUGS (2)
  1. ACCUTANE [Suspect]
     Indication: ACNE CYSTIC
     Route: 048
     Dates: start: 19971106, end: 199806
  2. IBUPROFEN [Concomitant]
     Indication: HEADACHE

REACTIONS (12)
  - Small intestinal obstruction [Recovering/Resolving]
  - Decreased appetite [Unknown]
  - Crohn^s disease [Not Recovered/Not Resolved]
  - Colitis ulcerative [Not Recovered/Not Resolved]
  - Depression [Unknown]
  - Inflammatory bowel disease [Not Recovered/Not Resolved]
  - Gastrointestinal injury [Unknown]
  - Proctitis ulcerative [Not Recovered/Not Resolved]
  - Perirectal abscess [Not Recovered/Not Resolved]
  - Perineal fistula [Not Recovered/Not Resolved]
  - Microcytic anaemia [Unknown]
  - Lip dry [Unknown]
